FAERS Safety Report 18219159 (Version 1)
Quarter: 2020Q3

REPORT INFORMATION
  Report Type: Spontaneous
  Country: GB (occurrence: GB)
  Receive Date: 20200901
  Receipt Date: 20200901
  Transmission Date: 20201103
  Serious: Yes (Death, Life-Threatening, Other)
  Sender: FDA-Public Use
  Company Number: GB-ELI_LILLY_AND_COMPANY-GB202008012592

PATIENT
  Age: 17 Year
  Sex: Female

DRUGS (6)
  1. GLUCAGON. [Suspect]
     Active Substance: GLUCAGON
     Dosage: 1 MG REPEATED THEREAFTER AT 2?HOURLY INTERVALS FOR FOUR DOSES
     Route: 030
  2. GLUCAGON. [Suspect]
     Active Substance: GLUCAGON
     Dosage: 1 MG, UNKNOWN
     Route: 042
     Dates: start: 19660529
  3. GLUCAGON. [Suspect]
     Active Substance: GLUCAGON
     Dosage: 1 MG, UNKNOWN
     Route: 042
  4. DEXTROSE. [Concomitant]
     Active Substance: DEXTROSE
     Dosage: IN THE FIRST 40 HOURS A TOTAL OF 490 G
     Route: 065
  5. GLUCAGON. [Suspect]
     Active Substance: GLUCAGON
     Indication: HYPOGLYCAEMIA
     Dosage: 1 MG, UNKNOWN
     Route: 030
     Dates: start: 19660529
  6. DEXTROSE. [Concomitant]
     Active Substance: DEXTROSE
     Dosage: 40 MG, UNKNOWN
     Route: 065
     Dates: start: 19660529

REACTIONS (10)
  - Respiratory acidosis [Unknown]
  - Blood urea increased [Unknown]
  - Hypotension [Unknown]
  - Metabolic acidosis [Unknown]
  - Respiratory failure [Unknown]
  - Prescribed overdose [Unknown]
  - Pneumonia [Unknown]
  - Sinus tachycardia [Unknown]
  - Blood glucose increased [Unknown]
  - Brain injury [Fatal]

NARRATIVE: CASE EVENT DATE: 19660530
